FAERS Safety Report 9585180 (Version 6)
Quarter: 2019Q2

REPORT INFORMATION
  Report Type: Spontaneous
  Country: US (occurrence: US)
  Receive Date: 20131002
  Receipt Date: 20190614
  Transmission Date: 20190711
  Serious: Yes (Other)
  Sender: FDA-Public Use
  Company Number: US-AMGEN-USASP2013062556

PATIENT
  Age: 54 Year
  Sex: Male
  Weight: 124.71 kg

DRUGS (36)
  1. MUPIROCIN. [Concomitant]
     Active Substance: MUPIROCIN
     Dosage: UNK
  2. OXYCODON [Concomitant]
     Active Substance: OXYCODONE
     Dosage: UNK
  3. TAMIFLU [Concomitant]
     Active Substance: OSELTAMIVIR PHOSPHATE
     Dosage: 75 MILLIGRAM, BID
     Route: 048
     Dates: start: 20160814
  4. DIAZEPAM. [Concomitant]
     Active Substance: DIAZEPAM
     Indication: SLEEP DISORDER
     Dosage: 10 MILLIGRAM, QD
     Route: 048
     Dates: start: 20170205
  5. VANCOMYCIN [Concomitant]
     Active Substance: VANCOMYCIN
     Indication: CLOSTRIDIUM DIFFICILE INFECTION
     Dosage: 125 MG, QD
  6. DICLOFENAC [Concomitant]
     Active Substance: DICLOFENAC
     Dosage: 50 MG, QD
  7. METHYLPREDNISOLONE. [Concomitant]
     Active Substance: METHYLPREDNISOLONE
     Dosage: 4 MG, UNK
     Dates: start: 20170129
  8. LORAZEPAM. [Concomitant]
     Active Substance: LORAZEPAM
     Dosage: 2 MILLIGRAM, QHS (TAKE 1 TABLET BY MOUTH AT BEDTIME)
     Route: 048
     Dates: start: 20180121
  9. CIPRO [Concomitant]
     Active Substance: CIPROFLOXACIN HYDROCHLORIDE
     Dosage: UNK
  10. INDOMETHACIN. [Concomitant]
     Active Substance: INDOMETHACIN
     Dosage: UNK
  11. DPT [Concomitant]
     Active Substance: DIPHTHERIA AND TETANUS TOXOIDS AND PERTUSSIS VACCINE
     Dosage: UNK
     Dates: start: 201704
  12. MEPERIDINE [PETHIDINE] [Concomitant]
     Active Substance: MEPERIDINE
     Dosage: 100 MG/ML (INJECT 1 VIAL EVERY 12 HOURS DAILY)
     Dates: start: 20170407
  13. METHOTREXATE. [Suspect]
     Active Substance: METHOTREXATE
     Indication: PRODUCT USED FOR UNKNOWN INDICATION
     Dosage: UNK
     Route: 065
  14. AMBIEN [Concomitant]
     Active Substance: ZOLPIDEM TARTRATE
     Dosage: UNK
  15. OXYCODONE/APAP [OXYCODONE;PARACETAMOL] [Concomitant]
     Indication: PAIN
     Dosage: 5-325 MG, Q6H PRN
     Route: 048
     Dates: start: 20170414
  16. VANCOMYCIN [Concomitant]
     Active Substance: VANCOMYCIN
     Indication: DIARRHOEA
  17. ACYCLOVIR. [Concomitant]
     Active Substance: ACYCLOVIR
     Indication: ORAL HERPES
     Dosage: 2000 MG, BID
  18. LOTEMAX [Concomitant]
     Active Substance: LOTEPREDNOL ETABONATE
     Dosage: UNK
  19. SIMBRINZA [Concomitant]
     Active Substance: BRIMONIDINE TARTRATE\BRINZOLAMIDE
     Dosage: UNK
  20. PREDNISONE. [Concomitant]
     Active Substance: PREDNISONE
     Dosage: 5 - 40MG BID, AS NEEDED
  21. MEPERIDINE [PETHIDINE] [Concomitant]
     Active Substance: MEPERIDINE
     Dosage: 100 MG/ML (INJECT 1 VIAL EVERY 12 HOURS DAILY)
     Dates: start: 20171201
  22. MEPERIDINE [PETHIDINE] [Concomitant]
     Active Substance: MEPERIDINE
     Dosage: 100 MG/ML (INJECT 1 VIAL EVERY 12 HOURS DAILY)
     Dates: start: 20180423
  23. ENBREL [Suspect]
     Active Substance: ETANERCEPT
     Indication: RHEUMATOID ARTHRITIS
     Dosage: 25 MG, 2 TIMES/WK
     Route: 065
     Dates: start: 20000615
  24. MISOPROSTOL. [Concomitant]
     Active Substance: MISOPROSTOL
     Dosage: 200 MUG, UNK
  25. DIAZEPAN [Concomitant]
     Active Substance: DIAZEPAM
     Dosage: UNK
  26. CEFZIL [Concomitant]
     Active Substance: CEFPROZIL
     Dosage: UNK
  27. DEMEROL [Concomitant]
     Active Substance: MEPERIDINE HYDROCHLORIDE
  28. MEPERIDINE [PETHIDINE] [Concomitant]
     Active Substance: MEPERIDINE
     Dosage: 100 MG/ML (INJECT 1 VIAL EVERY 12 HOURS DAILY)
     Dates: start: 20171015
  29. HYDROCODONE/ACETAMINOPHEN [Concomitant]
     Active Substance: ACETAMINOPHEN\HYDROCODONE
     Dosage: 10-325 (TAKE 1 TABLET Q4H PRN)
     Route: 048
     Dates: start: 20170205
  30. ARTHROTEC [Concomitant]
     Active Substance: DICLOFENAC SODIUM\MISOPROSTOL
     Dosage: UNK (75)
  31. CYCLOPENTOLATE. [Concomitant]
     Active Substance: CYCLOPENTOLATE
     Dosage: UNK
  32. ZOSTAVAX [Concomitant]
     Active Substance: VARICELLA-ZOSTER VIRUS STRAIN OKA/MERCK LIVE ANTIGEN
     Dosage: UNK
     Dates: start: 201704
  33. HYDROCODONE [Concomitant]
     Active Substance: HYDROCODONE
     Dosage: UNK
  34. PROBIOTIC [Concomitant]
     Active Substance: PROBIOTICS NOS
     Dosage: UNK
  35. MEPERIDINE [PETHIDINE] [Concomitant]
     Active Substance: MEPERIDINE
     Indication: PAIN
     Dosage: 100 MG/ML (INJECT 1 VIAL EVERY 12 HOURS DAILY)
     Dates: start: 20170218
  36. MEPERIDINE [PETHIDINE] [Concomitant]
     Active Substance: MEPERIDINE
     Dosage: 100 MG/ML (INJECT 1 VIAL EVERY 12 HOURS DAILY)
     Dates: start: 20170410

REACTIONS (53)
  - Hip arthroplasty [Unknown]
  - Fatigue [Unknown]
  - Headache [Unknown]
  - Libido decreased [Unknown]
  - Abdominal discomfort [Unknown]
  - Vision blurred [Unknown]
  - Sleep deficit [Unknown]
  - Irritable bowel syndrome [Unknown]
  - Lethargy [Unknown]
  - Toe operation [Unknown]
  - Nephrolithiasis [Unknown]
  - Tissue injury [Unknown]
  - Poor quality product administered [Unknown]
  - Gait inability [Unknown]
  - Road traffic accident [Unknown]
  - Paraesthesia [Unknown]
  - Herpes virus infection [Unknown]
  - Mental impairment [Not Recovered/Not Resolved]
  - Cholecystectomy [Unknown]
  - Dyspnoea [Not Recovered/Not Resolved]
  - Gout [Unknown]
  - Anger [Unknown]
  - Cough [Unknown]
  - Dysstasia [Unknown]
  - Rheumatoid arthritis [Recovering/Resolving]
  - Iritis [Not Recovered/Not Resolved]
  - Rectal haemorrhage [Unknown]
  - Wrong technique in product usage process [Unknown]
  - Oropharyngeal plaque [Unknown]
  - Fear [Not Recovered/Not Resolved]
  - Throat irritation [Unknown]
  - Urine output decreased [Unknown]
  - Vitreous injury [Unknown]
  - Drug ineffective [Unknown]
  - Product storage error [Unknown]
  - Vertigo [Unknown]
  - Bladder pain [Unknown]
  - Blood urine present [Unknown]
  - Anxiety [Unknown]
  - Clostridium difficile colitis [Unknown]
  - Head injury [Unknown]
  - Insomnia [Unknown]
  - Flatulence [Unknown]
  - Dental plaque [Unknown]
  - Knee arthroplasty [Unknown]
  - Reiter^s syndrome [Unknown]
  - Pain [Unknown]
  - Oral disorder [Unknown]
  - Eye pain [Unknown]
  - Abdominal distension [Unknown]
  - Epistaxis [Unknown]
  - Haemoptysis [Unknown]
  - Pyrexia [Unknown]

NARRATIVE: CASE EVENT DATE: 2000
